FAERS Safety Report 21770802 (Version 1)
Quarter: 2022Q4

REPORT INFORMATION
  Report Type: Spontaneous
  Country: US (occurrence: US)
  Receive Date: 20221223
  Receipt Date: 20221223
  Transmission Date: 20230112
  Serious: No
  Sender: FDA-Public Use
  Company Number: US-009507513-2212USA007813

PATIENT
  Sex: Female
  Weight: 84.354 kg

DRUGS (2)
  1. KEYTRUDA [Suspect]
     Active Substance: PEMBROLIZUMAB
     Dosage: UNK
  2. LENVATINIB MESYLATE [Suspect]
     Active Substance: LENVATINIB MESYLATE
     Indication: Endometrial neoplasm
     Dosage: 14 MILLIGRAM, QD
     Route: 048
     Dates: start: 202203

REACTIONS (3)
  - Skin papilloma [Not Recovered/Not Resolved]
  - Contusion [Not Recovered/Not Resolved]
  - Skin lesion [Not Recovered/Not Resolved]
